FAERS Safety Report 5481021-7 (Version None)
Quarter: 2007Q4

REPORT INFORMATION
  Report Type: 
  Country: None (occurrence: None)
  Receive Date: 20071004
  Receipt Date: 20070920
  Transmission Date: 20080405
  Serious: Yes (Life-Threatening, Hospitalization, Disabling)
  Sender: FDA-Public Use
  Company Number: 001#3#2007-00604

PATIENT
  Age: 72 Year
  Sex: Female

DRUGS (6)
  1. NEUPRO [Suspect]
     Indication: PARKINSON'S DISEASE
     Dosage: 12 MG/24H (12 MG/24H 1 IN 1 DAY (S)) TRANSDERMAL
     Route: 062
     Dates: end: 20070810
  2. ACETYLSALICYLIC ACID SRT [Concomitant]
  3. LISINOPRIL [Concomitant]
  4. AMLODIPINE [Concomitant]
  5. DIPYRONE TAB [Concomitant]
  6. ENOXAPARIN SODIUM [Concomitant]

REACTIONS (14)
  - ATRIAL FIBRILLATION [None]
  - BLOOD SODIUM DECREASED [None]
  - BLOOD UREA INCREASED [None]
  - CAROTID ARTERY STENOSIS [None]
  - EMBOLIC STROKE [None]
  - HAEMORRHAGIC CEREBRAL INFARCTION [None]
  - HYPERTENSION [None]
  - ISCHAEMIC CEREBRAL INFARCTION [None]
  - LEFT VENTRICULAR HYPERTROPHY [None]
  - OVERDOSE [None]
  - SUPRAVENTRICULAR EXTRASYSTOLES [None]
  - SUPRAVENTRICULAR TACHYCARDIA [None]
  - VENTRICULAR EXTRASYSTOLES [None]
  - WHITE BLOOD CELL COUNT INCREASED [None]
